FAERS Safety Report 5005144-1 (Version None)
Quarter: 2006Q2

REPORT INFORMATION
  Report Type: 
  Country: None (occurrence: None)
  Receive Date: 20060516
  Receipt Date: 20060516
  Transmission Date: 20061013
  Serious: Yes (Hospitalization)
  Sender: FDA-Public Use
  Company Number: None

PATIENT
  Age: 74 Year
  Sex: Male
  Weight: 80.7403 kg

DRUGS (1)
  1. MELOXICAM [Suspect]
     Indication: ARTHRALGIA
     Dosage: P.O.  7.5MG  DAILY
     Route: 048
     Dates: start: 20060203, end: 20060407

REACTIONS (1)
  - GASTROINTESTINAL HAEMORRHAGE [None]
